FAERS Safety Report 4277780-1 (Version None)
Quarter: 2004Q1

REPORT INFORMATION
  Report Type: 
  Country: None (occurrence: None)
  Receive Date: 20040121
  Receipt Date: 20030307
  Transmission Date: 20041129
  Serious: Yes (Hospitalization)
  Sender: FDA-Public Use
  Company Number: 2003-02-2451

PATIENT
  Age: 37 Year
  Sex: Male
  Weight: 72 kg

DRUGS (1)
  1. SUBUTEX [Suspect]
     Indication: DRUG DEPENDENCE
     Dosage: 2-8 MG QD
     Route: 048
     Dates: start: 20010716, end: 20011001

REACTIONS (1)
  - DRUG WITHDRAWAL SYNDROME [None]
